FAERS Safety Report 20503858 (Version 1)
Quarter: 2022Q1

REPORT INFORMATION
  Report Type: Spontaneous
  Country: US (occurrence: US)
  Receive Date: 20220222
  Receipt Date: 20220222
  Transmission Date: 20220423
  Serious: Yes (Disabling)
  Sender: FDA-Public Use
  Company Number: US-PURDUE PHARMA-USA-2022-0291572

PATIENT
  Sex: Female

DRUGS (1)
  1. BUTRANS [Suspect]
     Active Substance: BUPRENORPHINE
     Indication: Product used for unknown indication
     Dosage: UNK
     Route: 062

REACTIONS (3)
  - Application site pallor [Not Recovered/Not Resolved]
  - Application site pruritus [Not Recovered/Not Resolved]
  - Pruritus [Not Recovered/Not Resolved]
